FAERS Safety Report 9832044 (Version 1)
Quarter: 2014Q1

REPORT INFORMATION
  Report Type: Spontaneous
  Country: CA (occurrence: CA)
  Receive Date: 20140121
  Receipt Date: 20140121
  Transmission Date: 20141002
  Serious: Yes (Other)
  Sender: FDA-Public Use
  Company Number: PHHY2014CA005670

PATIENT
  Age: 74 Year
  Sex: Female
  Weight: 74 kg

DRUGS (1)
  1. ACLASTA [Suspect]
     Dosage: 0.05 MG/ML, UNK
     Route: 042

REACTIONS (10)
  - Cardiac disorder [Unknown]
  - Lung disorder [Unknown]
  - Renal disorder [Unknown]
  - Tongue discolouration [Unknown]
  - Weight decreased [Unknown]
  - Eye discharge [Unknown]
  - Feeling cold [Unknown]
  - Night sweats [Unknown]
  - Hyperhidrosis [Unknown]
  - Paraesthesia [Unknown]
